FAERS Safety Report 16275670 (Version 1)
Quarter: 2019Q2

REPORT INFORMATION
  Report Type: Spontaneous
  Country: US (occurrence: US)
  Receive Date: 20190503
  Receipt Date: 20190503
  Transmission Date: 20190711
  Serious: Yes (Disabling)
  Sender: FDA-Public Use
  Company Number: None

PATIENT
  Age: 65 Year
  Sex: Female
  Weight: 81 kg

DRUGS (3)
  1. CEPHALEXIN, 500MG, 21 TABLETS [Suspect]
     Active Substance: CEPHALEXIN
     Indication: CELLULITIS
     Dosage: ?          QUANTITY:21 CAPSULE(S);?
     Route: 048
  2. LOWER LEG BOOT FOR ACHILLES TEAR, RIGHT FOOT [Concomitant]
  3. IBUPROFEN. [Concomitant]
     Active Substance: IBUPROFEN

REACTIONS (1)
  - Tendon rupture [None]

NARRATIVE: CASE EVENT DATE: 20181220
